FAERS Safety Report 16593437 (Version 1)
Quarter: 2019Q3

REPORT INFORMATION
  Report Type: Spontaneous
  Country: GB (occurrence: GB)
  Receive Date: 20190718
  Receipt Date: 20190718
  Transmission Date: 20191004
  Serious: Yes (Hospitalization, Other)
  Sender: FDA-Public Use
  Company Number: PHHY2019GB161042

PATIENT
  Age: 21 Year
  Sex: Female

DRUGS (2)
  1. PARACETAMOL [Suspect]
     Active Substance: ACETAMINOPHEN
     Indication: TONSILLITIS
     Route: 065
  2. PARACETAMOL [Suspect]
     Active Substance: ACETAMINOPHEN
     Indication: MOUTH ULCERATION

REACTIONS (10)
  - Petechiae [Unknown]
  - Headache [Unknown]
  - Alopecia [Unknown]
  - Red blood cell count decreased [Unknown]
  - Sleep disorder [Unknown]
  - Pyrexia [Unknown]
  - Heart rate irregular [Unknown]
  - Asthenia [Not Recovered/Not Resolved]
  - Neutropenia [Unknown]
  - General physical health deterioration [Unknown]

NARRATIVE: CASE EVENT DATE: 2019
